FAERS Safety Report 24555160 (Version 1)
Quarter: 2024Q4

REPORT INFORMATION
  Report Type: Spontaneous
  Country: FR (occurrence: FR)
  Receive Date: 20241028
  Receipt Date: 20241028
  Transmission Date: 20250114
  Serious: Yes (Hospitalization)
  Sender: RANBAXY
  Company Number: FR-SUN PHARMACEUTICAL INDUSTRIES LTD-2024RR-475375

PATIENT
  Age: 33 Year
  Sex: Female

DRUGS (3)
  1. GANIRELIX ACETATE [Suspect]
     Active Substance: GANIRELIX ACETATE
     Indication: Oocyte harvest
     Dosage: 1 DOSAGE FORM, DAILY
     Route: 058
     Dates: start: 202308, end: 202308
  2. CHORIOGONADOTROPIN ALFA [Suspect]
     Active Substance: CHORIOGONADOTROPIN ALFA
     Indication: Oocyte harvest
     Dosage: 1 DOSAGE FORM, TOTAL 1
     Route: 058
     Dates: start: 20230827
  3. MENOPUR [Suspect]
     Active Substance: FOLLITROPIN\LUTEINIZING HORMONE
     Indication: Oocyte harvest
     Dosage: 187.5 INTERNATIONAL UNIT, DAILY
     Route: 058
     Dates: start: 202308, end: 202308

REACTIONS (2)
  - Maternal exposure before pregnancy [Recovered/Resolved]
  - Ovarian hyperstimulation syndrome [Recovered/Resolved]

NARRATIVE: CASE EVENT DATE: 20230801
